FAERS Safety Report 25927304 (Version 3)
Quarter: 2025Q4

REPORT INFORMATION
  Report Type: Spontaneous
  Country: LB (occurrence: LB)
  Receive Date: 20251015
  Receipt Date: 20251125
  Transmission Date: 20260118
  Serious: Yes (Hospitalization, Other)
  Sender: NOVO NORDISK
  Company Number: LB-NOVOPROD-1535925

PATIENT
  Age: 34 Year
  Sex: Female
  Weight: 62 kg

DRUGS (2)
  1. NOVORAPID [Suspect]
     Active Substance: INSULIN ASPART
     Indication: Type 1 diabetes mellitus
     Dosage: BETWEEN 5 UNITS AND 15 UNITS, DAILY DOSE AFTER EACH MEAL
     Route: 058
     Dates: start: 2018
  2. GLUCOPHAGE [Concomitant]
     Active Substance: METFORMIN HYDROCHLORIDE
     Indication: Type 1 diabetes mellitus
     Dosage: UNK, TAKEN ONCE DAILY
     Dates: start: 2018

REACTIONS (4)
  - Diabetic ketoacidosis [Recovered/Resolved]
  - Product dose omission issue [Recovered/Resolved]
  - Device defective [Recovered/Resolved]
  - Wrong technique in product usage process [Unknown]

NARRATIVE: CASE EVENT DATE: 20241201
